FAERS Safety Report 8313758-6 (Version None)
Quarter: 2012Q2

REPORT INFORMATION
  Report Type: 
  Country: None (occurrence: None)
  Receive Date: 20120426
  Receipt Date: 20110808
  Transmission Date: 20120825
  Serious: Yes (Other)
  Sender: FDA-Public Use
  Company Number: US-TEVA-US020348

PATIENT
  Sex: Male
  Weight: 122 kg

DRUGS (4)
  1. PROZAC [Concomitant]
     Indication: ATTENTION DEFICIT/HYPERACTIVITY DISORDER
     Dosage: 40 MILLIGRAM;
     Route: 048
     Dates: start: 20050916
  2. PROVIGIL [Suspect]
     Indication: FATIGUE
  3. CONCERTA [Concomitant]
     Indication: ATTENTION DEFICIT/HYPERACTIVITY DISORDER
     Dosage: 36 MILLIGRAM;
     Route: 048
     Dates: start: 20061120
  4. PROVIGIL [Suspect]
     Indication: ATTENTION DEFICIT/HYPERACTIVITY DISORDER
     Dosage: 100 MILLIGRAM;
     Route: 048
     Dates: start: 20070330, end: 20070330

REACTIONS (2)
  - HALLUCINATION, VISUAL [None]
  - ANXIETY [None]
